FAERS Safety Report 9637449 (Version 1)
Quarter: 2013Q4

REPORT INFORMATION
  Report Type: Spontaneous
  Country: US (occurrence: US)
  Receive Date: 20131022
  Receipt Date: 20131022
  Transmission Date: 20140711
  Serious: No
  Sender: FDA-Public Use
  Company Number: US-JNJFOC-20131006250

PATIENT
  Sex: Male
  Weight: 86.18 kg

DRUGS (6)
  1. INVEGA SUSTENNA [Suspect]
     Indication: SCHIZOAFFECTIVE DISORDER
     Route: 030
  2. INVEGA SUSTENNA [Suspect]
     Indication: SCHIZOAFFECTIVE DISORDER
     Route: 030
  3. INVEGA SUSTENNA [Suspect]
     Indication: SCHIZOAFFECTIVE DISORDER
     Route: 030
  4. INVEGA SUSTENNA [Suspect]
     Indication: SCHIZOAFFECTIVE DISORDER
     Route: 030
  5. LISINOPRIL [Concomitant]
     Indication: HYPERTENSION
     Route: 065
  6. METFORMIN [Concomitant]
     Indication: DIABETES MELLITUS
     Route: 065

REACTIONS (8)
  - Feeling abnormal [Unknown]
  - Dyspnoea [Unknown]
  - Tremor [Unknown]
  - Feeling cold [Unknown]
  - Weight increased [Not Recovered/Not Resolved]
  - Weight decreased [Not Recovered/Not Resolved]
  - Increased appetite [Unknown]
  - Fatigue [Unknown]
